FAERS Safety Report 6141088-X (Version None)
Quarter: 2009Q2

REPORT INFORMATION
  Report Type: 
  Country: None (occurrence: None)
  Receive Date: 20090402
  Receipt Date: 20090209
  Transmission Date: 20091009
  Serious: No
  Sender: FDA-Public Use
  Company Number: US-TYCO HEALTHCARE/MALLINCKRODT-T200900326

PATIENT
  Sex: Male

DRUGS (5)
  1. HYDROMORPHONE HCL [Suspect]
     Indication: BACK PAIN
     Dosage: 4 MG, QID
     Route: 048
     Dates: start: 20090105, end: 20090108
  2. TEMAZEPAM [Concomitant]
     Indication: NEUROPATHY PERIPHERAL
     Dosage: UNK
  3. LEVOTHYROXINE SODIUM [Concomitant]
     Indication: THYROID DISORDER
     Dosage: UNK
  4. COZAAR [Concomitant]
     Indication: HYPERTENSION
     Dosage: UNK
  5. DILTIAZEM [Concomitant]
     Indication: HYPERTENSION

REACTIONS (1)
  - MUSCLE STRAIN [None]
